FAERS Safety Report 9960239 (Version 1)
Quarter: 2014Q1

REPORT INFORMATION
  Report Type: Report from Study
  Country: US (occurrence: US)
  Receive Date: 20140305
  Receipt Date: 20140305
  Transmission Date: 20141002
  Serious: No
  Sender: FDA-Public Use
  Company Number: US-ABBVIE-13P-163-1103215-00

PATIENT
  Age: 25 Year
  Sex: Female

DRUGS (10)
  1. HUMIRA [Suspect]
     Indication: CROHN^S DISEASE
     Dates: start: 20130409
  2. CALCIUM [Concomitant]
     Indication: PRODUCT USED FOR UNKNOWN INDICATION
  3. VITAMIN D [Concomitant]
     Indication: PRODUCT USED FOR UNKNOWN INDICATION
  4. FISH OIL [Concomitant]
     Indication: PRODUCT USED FOR UNKNOWN INDICATION
     Dosage: I THINK 600
  5. FLUOXETINE [Concomitant]
     Indication: BULIMIA NERVOSA
  6. ADDERALL [Concomitant]
     Indication: ATTENTION DEFICIT/HYPERACTIVITY DISORDER
  7. NOVALOG INSULIN PUMP [Concomitant]
     Indication: TYPE 1 DIABETES MELLITUS
     Dosage: 0.05 UNITS/HR EVERY 1 HOUR, THEN 1 UNIT FOR EVERY 30 CARBS WHEN EATING
  8. OMEPRAZOLE [Concomitant]
     Indication: GASTROOESOPHAGEAL REFLUX DISEASE
  9. ALPRAZOLAM [Concomitant]
     Indication: ANXIETY
     Dosage: AT BEDTIME
  10. ALPRAZOLAM [Concomitant]
     Indication: INSOMNIA

REACTIONS (3)
  - Anxiety [Not Recovered/Not Resolved]
  - Injection site haemorrhage [Not Recovered/Not Resolved]
  - Gastrooesophageal reflux disease [Not Recovered/Not Resolved]
